FAERS Safety Report 19028780 (Version 3)
Quarter: 2021Q2

REPORT INFORMATION
  Report Type: Spontaneous
  Country: US (occurrence: US)
  Receive Date: 20210319
  Receipt Date: 20210505
  Transmission Date: 20210717
  Serious: Yes (Other)
  Sender: FDA-Public Use
  Company Number: US-ORGANON-O2103USA002120

PATIENT
  Age: 22 Year
  Sex: Female
  Weight: 161 kg

DRUGS (1)
  1. NEXPLANON [Suspect]
     Active Substance: ETONOGESTREL
     Dosage: 68 MILLIGRAM (1 IMPLANT) IN LEFT UPPER ARM. 3 YEARS
     Route: 059
     Dates: start: 20190822

REACTIONS (4)
  - No adverse event [Unknown]
  - Device dislocation [Not Recovered/Not Resolved]
  - Device kink [Not Recovered/Not Resolved]
  - Device placement issue [Not Recovered/Not Resolved]

NARRATIVE: CASE EVENT DATE: 20190822
